FAERS Safety Report 5460123-5 (Version None)
Quarter: 2007Q3

REPORT INFORMATION
  Report Type: 
  Country: None (occurrence: None)
  Receive Date: 20070823
  Receipt Date: 20070614
  Transmission Date: 20080115
  Serious: Yes (Other)
  Sender: FDA-Public Use
  Company Number: PHEH2007US08778

PATIENT
  Age: 85 Year
  Sex: Male

DRUGS (3)
  1. LOTENSIN [Suspect]
     Dosage: ORAL
     Route: 048
  2. FLOMAX [Suspect]
     Indication: BENIGN PROSTATIC HYPERPLASIA
     Dosage: 0.4 MG, QD, ORAL
     Route: 048
     Dates: start: 20070424, end: 20070524
  3. HYDROCHLOROTHIAZIDE [Suspect]
     Dosage: ORAL
     Route: 048

REACTIONS (3)
  - BENIGN PROSTATIC HYPERPLASIA [None]
  - FALL [None]
  - SYNCOPE [None]
